FAERS Safety Report 4939898-7 (Version None)
Quarter: 2006Q1

REPORT INFORMATION
  Report Type: 
  Country: None (occurrence: None)
  Receive Date: 20060310
  Receipt Date: 20060306
  Transmission Date: 20060701
  Serious: Yes (Death, Life-Threatening, Hospitalization, Disabling, Other)
  Sender: FDA-Public Use
  Company Number: US-GLAXOSMITHKLINE-A0596306A

PATIENT
  Age: 43 Year
  Sex: Male

DRUGS (4)
  1. EPZICOM [Suspect]
     Indication: HIV INFECTION
     Dosage: 1TAB PER DAY
     Route: 048
     Dates: start: 20060201, end: 20060303
  2. VIREAD [Concomitant]
  3. KALETRA [Concomitant]
  4. PRILOSEC [Concomitant]

REACTIONS (8)
  - ABDOMINAL PAIN [None]
  - CARDIO-RESPIRATORY ARREST [None]
  - DIARRHOEA [None]
  - MULTI-ORGAN FAILURE [None]
  - MYALGIA [None]
  - NAUSEA [None]
  - RASH [None]
  - VOMITING [None]
